FAERS Safety Report 12995761 (Version 1)
Quarter: 2016Q4

REPORT INFORMATION
  Report Type: Spontaneous
  Country: SE (occurrence: SE)
  Receive Date: 20161202
  Receipt Date: 20161202
  Transmission Date: 20170207
  Serious: Yes (Other)
  Sender: FDA-Public Use
  Company Number: SE-JNJFOC-20161126629

PATIENT
  Age: 55 Year
  Sex: Female

DRUGS (7)
  1. BRICANYL [Concomitant]
     Active Substance: TERBUTALINE SULFATE
  2. FLUOXETIN SANDOZ [Concomitant]
  3. KETOGAN NOVUM [Concomitant]
  4. LOSARTAN SANDOZ [Concomitant]
     Active Substance: LOSARTAN
  5. PULMICORT TURBUHALER [Concomitant]
     Active Substance: BUDESONIDE
  6. STELARA [Suspect]
     Active Substance: USTEKINUMAB
     Indication: SPONDYLITIS
     Route: 058
     Dates: start: 20160531, end: 20160922
  7. FELODIPIN STADA [Concomitant]
     Route: 065

REACTIONS (9)
  - Wound [Recovered/Resolved]
  - Myalgia [Recovered/Resolved]
  - Off label use [Unknown]
  - Product use issue [Unknown]
  - Blister [Recovered/Resolved]
  - Eye swelling [Recovered/Resolved]
  - Pruritus [Recovered/Resolved]
  - Ear haemorrhage [Recovered/Resolved]
  - Dyspnoea [Recovered/Resolved]

NARRATIVE: CASE EVENT DATE: 20160531
